FAERS Safety Report 23947729 (Version 1)
Quarter: 2024Q2

REPORT INFORMATION
  Report Type: Other
  Country: IN (occurrence: PT)
  Receive Date: 20240606
  Receipt Date: 20240606
  Transmission Date: 20240716
  Serious: Yes (Disabling)
  Sender: FDA-Public Use
  Company Number: PT-Breckenridge Pharmaceutical, Inc.-2157860

PATIENT
  Age: 71 Year
  Sex: Female

DRUGS (1)
  1. IMATINIB [Suspect]
     Active Substance: IMATINIB
     Indication: Chronic myeloid leukaemia
     Route: 048
     Dates: start: 201805, end: 202305

REACTIONS (1)
  - Dermatomyositis [Recovered/Resolved]
